FAERS Safety Report 9227102 (Version 1)
Quarter: 2013Q2

REPORT INFORMATION
  Report Type: Spontaneous
  Country: DE (occurrence: DE)
  Receive Date: 20130412
  Receipt Date: 20130412
  Transmission Date: 20140414
  Serious: Yes (Other)
  Sender: FDA-Public Use
  Company Number: DE-JNJFOC-20130403640

PATIENT
  Age: 71 Year
  Sex: Female

DRUGS (8)
  1. XARELTO [Suspect]
     Indication: PRODUCT USED FOR UNKNOWN INDICATION
     Route: 048
  2. CARVEDILOL [Concomitant]
     Route: 065
  3. PANTOZOL [Concomitant]
     Route: 065
  4. JODID [Concomitant]
     Route: 065
  5. CLONIDINE [Concomitant]
     Route: 065
  6. IBUPROFEN [Concomitant]
     Route: 065
  7. EXFORGE [Concomitant]
     Route: 065
  8. HCT [Concomitant]
     Route: 065

REACTIONS (4)
  - Retinal haemorrhage [Unknown]
  - Retinal vein thrombosis [Unknown]
  - Vision blurred [Recovering/Resolving]
  - Visual impairment [Recovered/Resolved]
